FAERS Safety Report 11173333 (Version 1)
Quarter: 2015Q2

REPORT INFORMATION
  Report Type: Spontaneous
  Country: ES (occurrence: ES)
  Receive Date: 20150608
  Receipt Date: 20150608
  Transmission Date: 20150821
  Serious: Yes (Hospitalization, Other)
  Sender: FDA-Public Use
  Company Number: ES-MYLANLABS-2015M1018512

PATIENT

DRUGS (3)
  1. IBUPROFEN. [Suspect]
     Active Substance: IBUPROFEN
     Dosage: REACHING A TOTAL TAKE 1200 MG
     Route: 065
  2. PARACETAMOL [Concomitant]
     Active Substance: ACETAMINOPHEN
     Dosage: 1 TABLET OF 500MG
     Route: 048
  3. ALGIDOL                            /00109201/ [Concomitant]
     Indication: PYREXIA
     Dosage: PARACETAMOL/CODEINE/ASCORBIC-ACID:650MG/10MG/500MG
     Route: 048

REACTIONS (5)
  - Drug reaction with eosinophilia and systemic symptoms [Recovering/Resolving]
  - Metabolic acidosis [Unknown]
  - Pleural effusion [Unknown]
  - Hepatic encephalopathy [Unknown]
  - Respiratory failure [Unknown]
